FAERS Safety Report 7932809-1 (Version None)
Quarter: 2011Q4

REPORT INFORMATION
  Report Type: 
  Country: None (occurrence: None)
  Receive Date: 20111122
  Receipt Date: 20111117
  Transmission Date: 20120403
  Serious: Yes (Other)
  Sender: FDA-Public Use
  Company Number: RU-PFIZER INC-2011281385

PATIENT
  Age: 84 Year
  Sex: Female

DRUGS (4)
  1. TAURINE [Concomitant]
     Dosage: UNSPECIFIED DOSE INTO BOTH EYES, AS NEEDED
     Route: 047
  2. XALATAN [Suspect]
     Indication: GLAUCOMA
     Dosage: 1 GTT, 1X/DAY, INTO RIGHT EYE
     Route: 047
     Dates: start: 20020101
  3. SENNA [Concomitant]
     Indication: DYSPEPSIA
     Dosage: UNK
     Route: 048
  4. CORINFAR [Concomitant]
     Indication: HYPERTENSION
     Dosage: 1 TABLET AS NEEDED
     Route: 048

REACTIONS (1)
  - HALLUCINATION, VISUAL [None]
